FAERS Safety Report 6961182-0 (Version None)
Quarter: 2010Q3

REPORT INFORMATION
  Report Type: 
  Country: None (occurrence: None)
  Receive Date: 20100901
  Receipt Date: 20100830
  Transmission Date: 20110219
  Serious: Yes (Other)
  Sender: FDA-Public Use
  Company Number: US-ROXANE LABORATORIES, INC.-2010-RO-01151RO

PATIENT
  Age: 33 Year
  Sex: Female

DRUGS (3)
  1. PREDNISONE [Suspect]
     Indication: LUPUS NEPHRITIS
     Dosage: 5 MG
  2. MYCOPHENOLATE MOFETIL [Suspect]
     Indication: LUPUS NEPHRITIS
     Dosage: 3000 MG
  3. FK 506 [Suspect]
     Indication: LUPUS NEPHRITIS
     Dosage: 6 MG

REACTIONS (4)
  - BLOOD CREATININE INCREASED [None]
  - BLOOD PRESSURE INCREASED [None]
  - DRUG INEFFECTIVE [None]
  - HERPES ZOSTER [None]
